FAERS Safety Report 9676281 (Version 1)
Quarter: 2013Q4

REPORT INFORMATION
  Report Type: Spontaneous
  Country: FR (occurrence: FR)
  Receive Date: 20131107
  Receipt Date: 20131107
  Transmission Date: 20140711
  Serious: Yes (Hospitalization)
  Sender: FDA-Public Use
  Company Number: FR-ASTRAZENECA-2013SE79793

PATIENT
  Age: 69 Year
  Sex: Male

DRUGS (7)
  1. XEROQUEL [Suspect]
     Indication: SCHIZOPHRENIA
     Route: 048
     Dates: start: 20130612
  2. ABILIFY [Suspect]
     Indication: SCHIZOPHRENIA
     Route: 048
     Dates: start: 20130612
  3. METFORMIN [Concomitant]
  4. VALSARTAN [Concomitant]
  5. CRESTOR [Concomitant]
  6. LOXAPAC [Concomitant]
  7. LOXEN [Concomitant]

REACTIONS (1)
  - Cerebrovascular accident [Unknown]
